FAERS Safety Report 8523048 (Version 5)
Quarter: 2019Q2

REPORT INFORMATION
  Report Type: Spontaneous
  Country: FR (occurrence: FR)
  Receive Date: 20120420
  Receipt Date: 20190411
  Transmission Date: 20190711
  Serious: Yes (Hospitalization, Other)
  Sender: FDA-Public Use
  Company Number: FR-PFIZER INC-2012096209

PATIENT
  Age: 82 Year
  Sex: Female

DRUGS (6)
  1. ARICEPT [Interacting]
     Active Substance: DONEPEZIL HYDROCHLORIDE
     Indication: AMNESIA
     Dosage: 10 MG, 1X/DAY
     Route: 048
     Dates: end: 20110607
  2. CARDENSIEL [Interacting]
     Active Substance: BISOPROLOL FUMARATE
     Indication: ATRIAL FIBRILLATION
     Dosage: 5 MG, DAILY
     Route: 048
     Dates: start: 20110420, end: 20110529
  3. CARDENSIEL [Interacting]
     Active Substance: BISOPROLOL FUMARATE
     Dosage: 7.5 MG, DAILY
     Route: 048
     Dates: start: 20110530, end: 20110607
  4. CORDARONE [Suspect]
     Active Substance: AMIODARONE HYDROCHLORIDE
     Indication: ATRIAL FIBRILLATION
     Dosage: 200 MG, DAILY
     Route: 048
     Dates: start: 20110420
  5. NORSET [Concomitant]
     Active Substance: MIRTAZAPINE
     Dosage: 15 MG, UNK
     Route: 048
     Dates: start: 2010
  6. KARDEGIC [Concomitant]
     Active Substance: ASPIRIN DL-LYSINE
     Dosage: 75 MG, UNK
     Route: 048
     Dates: start: 201104

REACTIONS (5)
  - Headache [Unknown]
  - Drug interaction [Recovered/Resolved]
  - Sinus bradycardia [Recovered/Resolved]
  - Dysphonia [Unknown]
  - Renal failure [Unknown]

NARRATIVE: CASE EVENT DATE: 20110606
